FAERS Safety Report 4598438-5 (Version None)
Quarter: 2005Q1

REPORT INFORMATION
  Report Type: 
  Country: None (occurrence: None)
  Receive Date: 20050304
  Receipt Date: 20050223
  Transmission Date: 20050727
  Serious: Yes (Death, Life-Threatening)
  Sender: FDA-Public Use
  Company Number: US-JNJFOC-20050102331

PATIENT
  Sex: Male
  Weight: 77.11 kg

DRUGS (4)
  1. DURAGESIC-100 [Suspect]
     Route: 062
     Dates: start: 20031101, end: 20041126
  2. DURAGESIC-100 [Suspect]
     Route: 062
     Dates: start: 20031101, end: 20041126
  3. VICODON ES [Suspect]
     Dates: start: 20021001, end: 20041126
  4. VICODON ES [Suspect]
     Dates: start: 20021001, end: 20041126

REACTIONS (2)
  - DRUG TOXICITY [None]
  - PULMONARY OEDEMA [None]
